FAERS Safety Report 18958251 (Version 1)
Quarter: 2021Q1

REPORT INFORMATION
  Report Type: Spontaneous
  Country: US (occurrence: US)
  Receive Date: 20210302
  Receipt Date: 20210302
  Transmission Date: 20210420
  Serious: Yes (Other)
  Sender: FDA-Public Use
  Company Number: US-MYLANLABS-2021M1012499

PATIENT
  Sex: Male

DRUGS (12)
  1. CYCLOPHOSPHAMIDE. [Suspect]
     Active Substance: CYCLOPHOSPHAMIDE
     Indication: HODGKIN^S DISEASE
     Dosage: RECEIVED 6 CYCLES OF COPP COMPRISING CYCLOPHOSPHAMIDE, VINCRISTINE, PROCARBAZINE AND PREDNISONE
     Route: 065
  2. IFOSFAMIDE. [Suspect]
     Active Substance: IFOSFAMIDE
     Indication: HODGKIN^S DISEASE
     Dosage: RECEIVED 2 CYCLES OF ICE COMPRISING IFOSFAMIDE, CARBOPLATIN AND ETOPOSIDE
     Route: 065
  3. PROCARBAZINE [Suspect]
     Active Substance: PROCARBAZINE
     Indication: HODGKIN^S DISEASE
     Dosage: RECEIVED 6 CYCLES OF COPP COMPRISING CYCLOPHOSPHAMIDE, VINCRISTINE, PROCARBAZINE AND PREDNISONE
     Route: 065
  4. EFAVIRENZ. [Concomitant]
     Active Substance: EFAVIRENZ
     Indication: HIV INFECTION
     Route: 065
  5. GEMCITABINE. [Suspect]
     Active Substance: GEMCITABINE
     Indication: HODGKIN^S DISEASE
     Dosage: RECEIVED ALONG WITH CYCLES 4?6 OF BRENTUXIMAB VEDOTIN
     Route: 065
  6. ONCOVIN [Suspect]
     Active Substance: VINCRISTINE SULFATE
     Indication: HODGKIN^S DISEASE
     Dosage: RECEIVED 6 CYCLES OF COPP COMPRISING CYCLOPHOSPHAMIDE, VINCRISTINE, PROCARBAZINE AND PREDNISONE
     Route: 065
  7. BRENTUXIMAB [Suspect]
     Active Substance: BRENTUXIMAB VEDOTIN
     Indication: HODGKIN^S DISEASE
     Dosage: RECEIVED 6 CYCLES
     Route: 065
  8. EMTRICITABINE [Concomitant]
     Active Substance: EMTRICITABINE
     Indication: HIV INFECTION
     Route: 065
  9. CARBOPLATIN. [Suspect]
     Active Substance: CARBOPLATIN
     Indication: HODGKIN^S DISEASE
     Dosage: RECEIVED 2 CYCLES OF ICE COMPRISING IFOSFAMIDE, CARBOPLATIN AND ETOPOSIDE
     Route: 065
  10. PREDNISONE. [Suspect]
     Active Substance: PREDNISONE
     Indication: HODGKIN^S DISEASE
     Dosage: RECEIVED 6 CYCLES OF COPP COMPRISING CYCLOPHOSPHAMIDE, VINCRISTINE, PROCARBAZINE AND PREDNISONE
     Route: 065
  11. ETOPOSIDE. [Suspect]
     Active Substance: ETOPOSIDE
     Indication: HODGKIN^S DISEASE
     Dosage: RECEIVED 2 CYCLES OF ICE COMPRISING IFOSFAMIDE, CARBOPLATIN AND ETOPOSIDE
     Route: 065
  12. TENOFOVIR [Concomitant]
     Active Substance: TENOFOVIR
     Indication: HIV INFECTION
     Route: 065

REACTIONS (1)
  - Drug ineffective [Unknown]
